FAERS Safety Report 4563737-X (Version None)
Quarter: 2005Q1

REPORT INFORMATION
  Report Type: 
  Country: None (occurrence: None)
  Receive Date: 20050121
  Receipt Date: 20050104
  Transmission Date: 20050727
  Serious: Yes (Death, Other)
  Sender: FDA-Public Use
  Company Number: USA041183296

PATIENT
  Age: 34 Year
  Sex: Male

DRUGS (3)
  1. SYMBYAX [Suspect]
     Indication: BIPOLAR DISORDER
     Dates: start: 20040428, end: 20040101
  2. KLONOPIN [Concomitant]
  3. PERCOCET [Concomitant]

REACTIONS (17)
  - ABDOMINAL DISTENSION [None]
  - BLOOD CREATININE INCREASED [None]
  - BLOOD GLUCOSE INCREASED [None]
  - BLOOD POTASSIUM INCREASED [None]
  - BLOOD PRESSURE IMMEASURABLE [None]
  - BODY TEMPERATURE DECREASED [None]
  - CARDIO-RESPIRATORY ARREST [None]
  - COMA [None]
  - COMPLETED SUICIDE [None]
  - CYANOSIS [None]
  - LIVIDITY [None]
  - MULTIPLE DRUG OVERDOSE [None]
  - PCO2 DECREASED [None]
  - PUPIL FIXED [None]
  - TREATMENT NONCOMPLIANCE [None]
  - VOMITING [None]
  - WHITE BLOOD CELL COUNT INCREASED [None]
